FAERS Safety Report 14261656 (Version 1)
Quarter: 2017Q4

REPORT INFORMATION
  Report Type: Spontaneous
  Country: US (occurrence: US)
  Receive Date: 20171208
  Receipt Date: 20171208
  Transmission Date: 20180321
  Serious: No
  Sender: FDA-Public Use
  Company Number: US-APOTEX-2017AP011318

PATIENT
  Age: 68 Year
  Sex: Male

DRUGS (2)
  1. ALUMINUM MAGNESIUM OXIDE [Concomitant]
     Indication: ULCER
     Dosage: UNK, FOUR TIMES A DAY
     Route: 065
  2. OMEPRAZOLE. [Suspect]
     Active Substance: OMEPRAZOLE
     Indication: ULCER
     Dosage: UNK
     Route: 065

REACTIONS (3)
  - Ulcer [Unknown]
  - Drug ineffective [Unknown]
  - Condition aggravated [Unknown]
